FAERS Safety Report 6230079-6 (Version None)
Quarter: 2009Q2

REPORT INFORMATION
  Report Type: 
  Country: None (occurrence: None)
  Receive Date: 20090615
  Receipt Date: 20090528
  Transmission Date: 20091009
  Serious: Yes (Hospitalization)
  Sender: FDA-Public Use
  Company Number: JP-GENENTECH-283200

PATIENT
  Sex: Male
  Weight: 68.5 kg

DRUGS (6)
  1. AVASTIN [Suspect]
     Indication: COLON CANCER METASTATIC
     Dosage: 340 MG, Q2W
     Route: 041
     Dates: start: 20080428
  2. CALCIUM LEVOFOLINATE [Suspect]
     Indication: COLON CANCER METASTATIC
     Dosage: 350 MG, Q2W
     Route: 041
     Dates: start: 20080428
  3. OXALIPLATIN [Suspect]
     Indication: COLON CANCER METASTATIC
     Dosage: 145 MG, QOD
     Route: 041
     Dates: start: 20081025
  4. DEXAMETHASONE SODIUM PHOSPHATE [Suspect]
     Indication: PROPHYLAXIS
     Dosage: 2 DF, QD
     Route: 042
  5. SEROTONE [Suspect]
     Indication: PROPHYLAXIS
     Dosage: 10 MG, QD
     Route: 042
  6. FLUOROURACIL [Concomitant]
     Indication: LARGE INTESTINE CARCINOMA

REACTIONS (1)
  - ANAPHYLACTOID REACTION [None]
